FAERS Safety Report 4357030-8 (Version None)
Quarter: 2004Q2

REPORT INFORMATION
  Report Type: 
  Country: None (occurrence: None)
  Receive Date: 20040512
  Receipt Date: 20030411
  Transmission Date: 20050107
  Serious: Yes (Death)
  Sender: FDA-Public Use
  Company Number: US-GLAXOSMITHKLINE-A0404739A

PATIENT
  Age: 34 Year
  Sex: Female
  Weight: 59.3 kg

DRUGS (3)
  1. FLOLAN [Suspect]
     Indication: PULMONARY HYPERTENSION
     Route: 042
     Dates: start: 20010101
  2. DILTIAZEM [Concomitant]
     Dates: start: 20000201
  3. WARFARIN SODIUM [Concomitant]
     Dates: start: 20000201

REACTIONS (5)
  - AUTOIMMUNE DISORDER [None]
  - CARDIOPULMONARY FAILURE [None]
  - DRUG EXPOSURE DURING PREGNANCY [None]
  - PULMONARY HYPERTENSION [None]
  - THROMBOCYTOPENIA [None]
